FAERS Safety Report 10427569 (Version 4)
Quarter: 2014Q3

REPORT INFORMATION
  Report Type: Spontaneous
  Country: JP (occurrence: JP)
  Receive Date: 20140903
  Receipt Date: 20140923
  Transmission Date: 20150326
  Serious: Yes (Hospitalization, Other)
  Sender: FDA-Public Use
  Company Number: JP-PFIZER INC-2014239914

PATIENT
  Age: 81 Year
  Sex: Male

DRUGS (26)
  1. LYRICA [Suspect]
     Active Substance: PREGABALIN
     Indication: POST HERPETIC NEURALGIA
     Dosage: 50 MG, DAILY
     Route: 048
     Dates: start: 20140607
  2. LYRICA [Suspect]
     Active Substance: PREGABALIN
     Dosage: 300 MG, DAILY
     Route: 048
     Dates: start: 20140703
  3. MAG-LAX [Concomitant]
     Active Substance: MAGNESIUM HYDROXIDE\PARAFFIN
     Dosage: 330 MG, 2X/DAY
  4. PREDONIN [Concomitant]
     Dosage: 7.5 MG, 1X/DAY
  5. BONALON [Concomitant]
     Active Substance: ALENDRONATE SODIUM
     Dosage: 35 MG, WEEKLY
  6. BAKTAR [Concomitant]
     Active Substance: SULFAMETHOXAZOLE\TRIMETHOPRIM
     Dosage: 1 TABLET ONCE A DAY
  7. LEXAPRO [Concomitant]
     Active Substance: ESCITALOPRAM OXALATE
     Dosage: 10 MG, 1X/DAY
  8. CODEIN [Suspect]
     Active Substance: CODEINE
     Indication: POST HERPETIC NEURALGIA
     Dosage: 20 MG, DAILY
     Route: 048
     Dates: start: 20140616
  9. NORITREN [Suspect]
     Active Substance: NORTRIPTYLINE HYDROCHLORIDE
     Dosage: 10 MG, DAILY
     Route: 048
     Dates: start: 20140709, end: 20140710
  10. BAYASPIRIN [Concomitant]
     Active Substance: ASPIRIN
     Dosage: 100 MG, 1X/DAY
  11. LIPITOR [Concomitant]
     Active Substance: ATORVASTATIN CALCIUM
     Dosage: 10 MG, 1X/DAY
  12. MAG-LAX [Concomitant]
     Active Substance: MAGNESIUM HYDROXIDE\PARAFFIN
     Dosage: 1 ENVELOPE ONCE A DAY
  13. NORITREN [Suspect]
     Active Substance: NORTRIPTYLINE HYDROCHLORIDE
     Indication: POST HERPETIC NEURALGIA
     Dosage: 10 MG, DAILY
     Route: 048
     Dates: start: 20140609
  14. PIRESPA600 [Concomitant]
     Dosage: 600 MG, 3X/DAY
  15. LYRICA [Suspect]
     Active Substance: PREGABALIN
     Dosage: 75 MG, DAILY
     Route: 048
     Dates: start: 20140608
  16. LYRICA [Suspect]
     Active Substance: PREGABALIN
     Dosage: 225 MG, DAILY
     Route: 048
     Dates: start: 20140626
  17. CODEIN [Suspect]
     Active Substance: CODEINE
     Dosage: 40 MG, DAILY
     Route: 048
     Dates: start: 20140703
  18. LYRICA [Suspect]
     Active Substance: PREGABALIN
     Dosage: 225 MG, DAILY
     Route: 048
     Dates: start: 20140709, end: 20140710
  19. CALONAL [Concomitant]
     Active Substance: ACETAMINOPHEN
     Indication: POST HERPETIC NEURALGIA
     Dosage: 1800 MG, DAILY
     Dates: start: 20140606, end: 20140606
  20. CELECOX [Concomitant]
     Active Substance: CELECOXIB
     Indication: POST HERPETIC NEURALGIA
     Dosage: 200 MG, DAILY
     Dates: start: 20140609, end: 20140710
  21. TAKEPRON [Concomitant]
     Active Substance: LANSOPRAZOLE
     Dosage: 15 MG, 1X/DAY
  22. LYRICA [Suspect]
     Active Substance: PREGABALIN
     Dosage: 150 MG, DAILY
     Route: 048
     Dates: start: 20140612
  23. CODEIN [Suspect]
     Active Substance: CODEINE
     Dosage: 20 MG, DAILY
     Route: 048
     Dates: start: 20140709, end: 20140710
  24. NORITREN [Suspect]
     Active Substance: NORTRIPTYLINE HYDROCHLORIDE
     Dosage: 20 MG, DAILY
     Route: 048
     Dates: start: 20140703
  25. CALONAL [Concomitant]
     Active Substance: ACETAMINOPHEN
     Dosage: 2400 MG, DAILY
     Dates: start: 20140607, end: 20140710
  26. BLOPRESS [Concomitant]
     Active Substance: CANDESARTAN CILEXETIL
     Dosage: 8 MG, 1X/DAY

REACTIONS (13)
  - Chest pain [Recovering/Resolving]
  - Fall [Recovering/Resolving]
  - Delirium [Recovering/Resolving]
  - Abasia [Unknown]
  - Humerus fracture [Unknown]
  - Cholecystitis [Recovering/Resolving]
  - Rib fracture [Recovering/Resolving]
  - Abdominal pain [Recovering/Resolving]
  - Restlessness [Recovering/Resolving]
  - Pneumonia aspiration [Recovering/Resolving]
  - Clavicle fracture [Unknown]
  - Hyponatraemia [Recovering/Resolving]
  - Hypocalcaemia [Recovering/Resolving]

NARRATIVE: CASE EVENT DATE: 20140709
